FAERS Safety Report 7206282-5 (Version None)
Quarter: 2011Q1

REPORT INFORMATION
  Report Type: 
  Country: None (occurrence: None)
  Receive Date: 20110103
  Receipt Date: 20101222
  Transmission Date: 20110831
  Serious: Yes (Hospitalization, Other)
  Sender: FDA-Public Use
  Company Number: PHHY2010CA85415

PATIENT
  Sex: Female

DRUGS (4)
  1. DOMPIRIDONE [Concomitant]
  2. ACLASTA [Suspect]
     Indication: OSTEOPOROSIS
     Dosage: 5 MG PER YAER
     Dates: start: 20091123
  3. AMITRIPTYLINE [Concomitant]
  4. PREVACID [Concomitant]

REACTIONS (6)
  - PYREXIA [None]
  - MULTIPLE SCLEROSIS [None]
  - COUGH [None]
  - OTITIS MEDIA [None]
  - PNEUMONIA [None]
  - WHEELCHAIR USER [None]
